FAERS Safety Report 7260992-2 (Version None)
Quarter: 2011Q1

REPORT INFORMATION
  Report Type: 
  Country: None (occurrence: None)
  Receive Date: 20110130
  Receipt Date: 20101122
  Transmission Date: 20110831
  Serious: Yes (Other)
  Sender: FDA-Public Use
  Company Number: US-ABBOTT-10P-163-0685262-00

PATIENT
  Sex: Male
  Weight: 128.03 kg

DRUGS (4)
  1. TRILIPIX [Concomitant]
     Indication: BLOOD CHOLESTEROL INCREASED
     Route: 048
     Dates: start: 20100101
  2. HUMIRA [Suspect]
     Indication: PSORIATIC ARTHROPATHY
     Route: 058
     Dates: start: 20100507, end: 20100517
  3. CRESTOR [Concomitant]
     Indication: BLOOD CHOLESTEROL INCREASED
     Route: 048
  4. METOPROLOL [Concomitant]
     Indication: HYPERTENSION
     Dosage: 0.5 TABLET TWICE DAILY
     Route: 048

REACTIONS (4)
  - ANAEMIA [None]
  - LETHARGY [None]
  - FEELING OF DESPAIR [None]
  - ACUTE MYELOID LEUKAEMIA [None]
